FAERS Safety Report 8198855-0 (Version None)
Quarter: 2012Q1

REPORT INFORMATION
  Report Type: 
  Country: None (occurrence: None)
  Receive Date: 20120309
  Receipt Date: 20120213
  Transmission Date: 20120608
  Serious: No
  Sender: FDA-Public Use
  Company Number: US-AMGEN-USASP2012009399

PATIENT
  Age: 74 Year
  Sex: Female

DRUGS (3)
  1. VITAMIN B-12 [Suspect]
  2. PROLIA [Suspect]
     Indication: OSTEOPOROSIS POSTMENOPAUSAL
     Dosage: 60 MG, Q6MO
     Dates: start: 20120126
  3. CALCIUM + VIT D [Concomitant]
     Dosage: 2 MG, UNK

REACTIONS (4)
  - DECREASED APPETITE [None]
  - INFLUENZA LIKE ILLNESS [None]
  - DIZZINESS [None]
  - WEIGHT DECREASED [None]
